FAERS Safety Report 5040498-1 (Version None)
Quarter: 2006Q2

REPORT INFORMATION
  Report Type: 
  Country: None (occurrence: None)
  Receive Date: 20060630
  Receipt Date: 20060601
  Transmission Date: 20061013
  Serious: Yes (Death)
  Sender: FDA-Public Use
  Company Number: DE-ROCHE-450186

PATIENT
  Age: 36 Year
  Sex: Male
  Weight: 59 kg

DRUGS (1)
  1. INVIRASE [Suspect]
     Indication: DRUG USE FOR UNKNOWN INDICATION
     Dosage: STRENGTH REPORTED AS 500. DRUG NAME REPORTED AS INVIRASE 500.
     Route: 048
     Dates: start: 20060418, end: 20060427

REACTIONS (2)
  - CD4 LYMPHOCYTES DECREASED [None]
  - PNEUMOCYSTIS JIROVECI PNEUMONIA [None]
